FAERS Safety Report 9211090 (Version 1)
Quarter: 2013Q2

REPORT INFORMATION
  Report Type: Spontaneous
  Country: US (occurrence: US)
  Receive Date: 20130404
  Receipt Date: 20130404
  Transmission Date: 20140414
  Serious: No
  Sender: FDA-Public Use
  Company Number: US-ASTRAZENECA-2013SE18752

PATIENT
  Age: 76 Year
  Sex: Female
  Weight: 56.7 kg

DRUGS (7)
  1. NEXIUM [Suspect]
     Indication: GASTROOESOPHAGEAL REFLUX DISEASE
     Dosage: EVERY OTHER DAY
     Route: 048
  2. PRILOSEC [Suspect]
     Route: 048
  3. POTASSIUM CITRATE [Concomitant]
     Indication: NEPHROLITHIASIS
  4. SODIUM BICARBONATE [Concomitant]
     Indication: NEPHROLITHIASIS
  5. MAGNESIUM OXIDE [Concomitant]
     Indication: NEPHROLITHIASIS
  6. MACROBID [Concomitant]
     Indication: URINARY TRACT INFECTION
  7. METFORMIN [Concomitant]
     Indication: DIABETES MELLITUS

REACTIONS (5)
  - Throat irritation [Unknown]
  - Body height decreased [Unknown]
  - Nasal discomfort [Unknown]
  - Intentional drug misuse [Unknown]
  - Drug ineffective [Unknown]
